FAERS Safety Report 9209414 (Version 4)
Quarter: 2013Q2

REPORT INFORMATION
  Report Type: Spontaneous
  Country: JP (occurrence: JP)
  Receive Date: 20130404
  Receipt Date: 20130430
  Transmission Date: 20140414
  Serious: Yes (Death, Life-Threatening)
  Sender: FDA-Public Use
  Company Number: JP-PFIZER INC-2013086413

PATIENT
  Age: 83 Year
  Sex: Male
  Weight: 42 kg

DRUGS (3)
  1. ZYVOX [Suspect]
     Indication: PNEUMONIA STAPHYLOCOCCAL
     Dosage: 600 MG, 2X/DAY
     Route: 041
     Dates: start: 20130221, end: 20130304
  2. PANTOSIN [Concomitant]
     Indication: ILEUS PARALYTIC
     Dosage: 200 MG, 1X/DAY
     Route: 041
     Dates: start: 20130104
  3. ASPARA POTASSIUM [Concomitant]
     Indication: HYPOKALAEMIA
     Dosage: 20 ML, 1X/DAY
     Route: 041
     Dates: start: 20130215

REACTIONS (2)
  - Pneumonia fungal [Fatal]
  - Pancytopenia [Not Recovered/Not Resolved]
